FAERS Safety Report 8827941 (Version 1)
Quarter: 2012Q4

REPORT INFORMATION
  Report Type: 
  Country: US (occurrence: US)
  Receive Date: 20121005
  Receipt Date: 20121005
  Transmission Date: 20130627
  Serious: No
  Sender: FDA-Public Use
  Company Number: US-PFIZER INC-2012236620

PATIENT
  Sex: Female

DRUGS (2)
  1. VISTARIL [Suspect]
     Dosage: UNK
     Dates: start: 20120608, end: 20120907
  2. ZOLOFT [Suspect]
     Dosage: UNK
     Dates: start: 20120608, end: 20120907

REACTIONS (1)
  - Withdrawal syndrome [Unknown]
